APPROVED DRUG PRODUCT: SILODOSIN
Active Ingredient: SILODOSIN
Strength: 8MG
Dosage Form/Route: CAPSULE;ORAL
Application: A204816 | Product #002
Applicant: ZYDUS PHARMACEUTICALS USA INC
Approved: Dec 8, 2022 | RLD: No | RS: No | Type: DISCN